FAERS Safety Report 4381643-0 (Version None)
Quarter: 2004Q2

REPORT INFORMATION
  Report Type: 
  Country: None (occurrence: None)
  Receive Date: 20040603
  Receipt Date: 20030825
  Transmission Date: 20050107
  Serious: Yes (Death)
  Sender: FDA-Public Use
  Company Number: 200317643US

PATIENT
  Sex: Female

DRUGS (1)
  1. LOVENOX [Suspect]
     Indication: ANGINA PECTORIS

REACTIONS (1)
  - RETROPERITONEAL HAEMORRHAGE [None]
